FAERS Safety Report 6933823-5 (Version None)
Quarter: 2010Q3

REPORT INFORMATION
  Report Type: 
  Country: None (occurrence: None)
  Receive Date: 20100820
  Receipt Date: 20100810
  Transmission Date: 20110219
  Serious: Yes (Other)
  Sender: FDA-Public Use
  Company Number: US-PFIZER INC-2010100713

PATIENT
  Sex: Female
  Weight: 79 kg

DRUGS (10)
  1. CHANTIX [Suspect]
     Indication: SMOKING CESSATION THERAPY
     Dosage: 0.5 MG, 1X/DAY
     Route: 048
  2. SPIRONOLACTONE [Concomitant]
     Indication: HYPERTENSION
     Dosage: 100 MG, 1X/DAY
     Route: 048
  3. LEVOXYL [Concomitant]
     Indication: THYROID DISORDER
     Dosage: 150 UG, 1X/DAY
     Route: 048
  4. HYDROCHLOROTHIAZIDE [Concomitant]
     Indication: DIURETIC THERAPY
     Dosage: 12.5 MG, 1X/DAY
  5. CITALOPRAM [Concomitant]
     Indication: DEPRESSION
     Dosage: 40 MG, 1X/DAY
     Dates: end: 20100701
  6. OXYCODONE [Concomitant]
     Indication: BACK PAIN
     Dosage: 5 MG, AS NEEDED
  7. OXYCODONE [Concomitant]
     Indication: ARTHRALGIA
  8. OXYCODONE [Concomitant]
     Indication: PAIN IN EXTREMITY
  9. MULTI-VITAMINS [Concomitant]
     Dosage: UNK, AS NEEDED
  10. CALCIUM [Concomitant]
     Dosage: UNK, AS NEEDED

REACTIONS (2)
  - GLUCOSE TOLERANCE IMPAIRED [None]
  - NAUSEA [None]
